FAERS Safety Report 8492731-1 (Version None)
Quarter: 2012Q3

REPORT INFORMATION
  Report Type: 
  Country: None (occurrence: None)
  Receive Date: 20120706
  Receipt Date: 20120622
  Transmission Date: 20120928
  Serious: Yes (Hospitalization, Other)
  Sender: FDA-Public Use
  Company Number: CA-MYLANLABS-2012S1013074

PATIENT
  Age: 50 Year
  Sex: Female

DRUGS (5)
  1. IDARUBICIN HCL [Suspect]
     Indication: ACUTE MYELOID LEUKAEMIA
     Dosage: 12 MG/M2 ON D1-3; INDUCTION CHEMOTHERAPY
     Route: 065
  2. VERCYTE [Concomitant]
     Indication: ESSENTIAL THROMBOCYTHAEMIA
     Route: 065
  3. CYTARABINE [Suspect]
     Indication: ACUTE MYELOID LEUKAEMIA
     Dosage: 100 MG/M2 ON D1-7; INDUCTION CHEMOTHERAPY
     Route: 065
  4. MITOXANTRONE [Suspect]
     Indication: ACUTE MYELOID LEUKAEMIA
     Dosage: 10 MG/M2 ON D1-5; 2ND INDUCTION CHEMOTHERAPY
     Route: 065
  5. ETOPOSIDE [Suspect]
     Indication: ACUTE MYELOID LEUKAEMIA
     Dosage: 100 MG/M2 ON D1-5; 2ND INDUCTION CHEMOTHERAPY
     Route: 065

REACTIONS (11)
  - ALVEOLITIS ALLERGIC [None]
  - COLITIS [None]
  - PETECHIAE [None]
  - PYREXIA [None]
  - HAEMOPTYSIS [None]
  - REFRACTORINESS TO PLATELET TRANSFUSION [None]
  - FEBRILE NEUTROPENIA [None]
  - THROMBOCYTOPENIA [None]
  - PANNICULITIS [None]
  - PANCYTOPENIA [None]
  - KLEBSIELLA SEPSIS [None]
